FAERS Safety Report 6830572-9 (Version None)
Quarter: 2010Q3

REPORT INFORMATION
  Report Type: 
  Country: None (occurrence: None)
  Receive Date: 20100707
  Receipt Date: 20100624
  Transmission Date: 20110219
  Serious: Yes (Hospitalization, Other)
  Sender: FDA-Public Use
  Company Number: TRP_06923_2010

PATIENT
  Sex: Female

DRUGS (4)
  1. RIBAVARIN [Suspect]
     Indication: HEPATITIS C
     Dosage: ORAL
     Route: 048
     Dates: start: 20100312, end: 20100312
  2. PEG-INTRON [Suspect]
     Indication: HEPATITIS C
     Dosage: SUBCUTANEOUS
     Route: 058
     Dates: start: 20100312, end: 20100312
  3. ATENOLOL [Concomitant]
  4. ANTIHYPERTENSIVES AND DIURETICS IN COMBATIO [Concomitant]

REACTIONS (11)
  - BLOOD SODIUM DECREASED [None]
  - DECREASED APPETITE [None]
  - DEHYDRATION [None]
  - DYSPEPSIA [None]
  - FALL [None]
  - HYPOPHAGIA [None]
  - INCONTINENCE [None]
  - LOSS OF CONSCIOUSNESS [None]
  - MALAISE [None]
  - VOMITING [None]
  - WHIPLASH INJURY [None]
